FAERS Safety Report 16131488 (Version 4)
Quarter: 2019Q3

REPORT INFORMATION
  Report Type: Report from Study
  Country: US (occurrence: US)
  Receive Date: 20190328
  Receipt Date: 20190703
  Transmission Date: 20191004
  Serious: Yes (Hospitalization)
  Sender: FDA-Public Use
  Company Number: US-ACTELION-A-NJ2019-188166

PATIENT
  Age: 1 Year
  Sex: Female

DRUGS (5)
  1. FLOVENT [Concomitant]
     Active Substance: FLUTICASONE PROPIONATE
     Dosage: 110 MG, 2 PUFF BID
  2. PREDNISONE. [Concomitant]
     Active Substance: PREDNISONE
     Dosage: 45 MG, QD
  3. OMEPRAZOLE. [Concomitant]
     Active Substance: OMEPRAZOLE
     Dosage: 8 MG, QD
  4. PREDNISOLONE. [Concomitant]
     Active Substance: PREDNISOLONE
  5. BOSENTAN TABLET 32 MG PED US [Suspect]
     Active Substance: BOSENTAN
     Indication: PULMONARY HYPERTENSION
     Dosage: 16 MG, BID
     Route: 048
     Dates: start: 20180620

REACTIONS (9)
  - Viral upper respiratory tract infection [Recovered/Resolved]
  - Rhinovirus infection [Recovered/Resolved]
  - Pyrexia [Unknown]
  - Enterovirus infection [Recovered/Resolved]
  - Dyspnoea [Unknown]
  - Bronchiolitis [Recovered/Resolved]
  - Respiratory failure [Recovered/Resolved]
  - Cough [Unknown]
  - Bilevel positive airway pressure [Unknown]

NARRATIVE: CASE EVENT DATE: 20190213
